FAERS Safety Report 9864192 (Version 2)
Quarter: 2014Q2

REPORT INFORMATION
  Report Type: Spontaneous
  Country: US (occurrence: US)
  Receive Date: 20140203
  Receipt Date: 20140409
  Transmission Date: 20141212
  Serious: No
  Sender: FDA-Public Use
  Company Number: US-009507513-1402USA000717

PATIENT
  Sex: Female
  Weight: 72.56 kg

DRUGS (13)
  1. CLARITIN REDITABS [Suspect]
     Indication: RHINORRHOEA
     Dosage: UNK, UNKNOWN
     Route: 048
     Dates: start: 20131115, end: 20131228
  2. CLARITIN REDITABS [Suspect]
     Indication: RHINORRHOEA
  3. CLARITIN REDITABS [Suspect]
     Indication: PYREXIA
  4. CLARITIN REDITABS [Suspect]
     Indication: COUGH
  5. METOPROLOL [Concomitant]
     Indication: HYPERTENSION
     Dosage: UNK, UNKNOWN
  6. LISINOPRIL [Concomitant]
     Indication: HYPERTENSION
     Dosage: UNK, UNKNOWN
  7. ASPIRIN [Concomitant]
     Indication: PRODUCT USED FOR UNKNOWN INDICATION
     Dosage: 81 MG, QD
  8. RED YEAST [Concomitant]
     Indication: BLOOD CHOLESTEROL
     Dosage: 600 MG, BID
  9. ESTER-C [Concomitant]
     Indication: PRODUCT USED FOR UNKNOWN INDICATION
     Dosage: UNK, UNKNOWN
  10. BIOTIN [Concomitant]
     Indication: ALOPECIA
     Dosage: UNK, UNKNOWN
  11. BIOTIN [Concomitant]
     Indication: PRODUCT USED FOR UNKNOWN INDICATION
  12. VITAMIN B (UNSPECIFIED) [Concomitant]
     Indication: GENERAL SYMPTOM
     Dosage: UNK, UNKNOWN
  13. VITAMIN A [Concomitant]
     Dosage: UNK, QD

REACTIONS (3)
  - Drug ineffective [Unknown]
  - Drug effect decreased [Unknown]
  - Product closure removal difficult [Unknown]
